FAERS Safety Report 21311178 (Version 1)
Quarter: 2022Q3

REPORT INFORMATION
  Report Type: Spontaneous
  Country: US (occurrence: None)
  Receive Date: 20220909
  Receipt Date: 20220909
  Transmission Date: 20221027
  Serious: No
  Sender: FDA-Public Use
  Company Number: US-ARIS GLOBAL-202202-0227

PATIENT
  Age: 79 Year
  Sex: Female

DRUGS (5)
  1. OXERVATE [Suspect]
     Active Substance: CENEGERMIN-BKBJ
     Indication: Neurotrophic keratopathy
     Route: 047
     Dates: start: 20220204
  2. TYRVAYA [Concomitant]
     Active Substance: VARENICLINE TARTRATE
     Dosage: 0.03/SPRAY SPRAY MIDDLE EAR TOTAL PRESSURE METP
  3. MURO-128 [Concomitant]
  4. RETAINE MGD [Concomitant]
     Active Substance: LIGHT MINERAL OIL\MINERAL OIL
     Dosage: 0.5 %-0.5%
  5. ACETYLCYSTEINE [Concomitant]
     Active Substance: ACETYLCYSTEINE
     Dosage: 100 MG/ML VIAL

REACTIONS (16)
  - Dizziness [Unknown]
  - Eye swelling [Not Recovered/Not Resolved]
  - Vomiting [Not Recovered/Not Resolved]
  - Nausea [Recovered/Resolved]
  - Hyperhidrosis [Unknown]
  - Swelling [Unknown]
  - Ocular discomfort [Unknown]
  - Eye pain [Not Recovered/Not Resolved]
  - Headache [Unknown]
  - Dysarthria [Unknown]
  - Swollen tongue [Unknown]
  - Dehydration [Unknown]
  - Syncope [Unknown]
  - Periorbital swelling [Unknown]
  - Eye pain [Unknown]
  - Sinus headache [Unknown]

NARRATIVE: CASE EVENT DATE: 20220201
